FAERS Safety Report 18611162 (Version 1)
Quarter: 2020Q4

REPORT INFORMATION
  Report Type: Spontaneous
  Country: US (occurrence: US)
  Receive Date: 20201214
  Receipt Date: 20201214
  Transmission Date: 20210114
  Serious: No
  Sender: FDA-Public Use
  Company Number: US-RECORDATI RARE DISEASES-2102951

PATIENT
  Age: 52 Year
  Sex: Female

DRUGS (2)
  1. SIGNIFOR LAR [Suspect]
     Active Substance: PASIREOTIDE PAMOATE
     Indication: SOTOS^ SYNDROME
  2. SIGNIFOR LAR [Suspect]
     Active Substance: PASIREOTIDE PAMOATE
     Indication: ACROMEGALY

REACTIONS (1)
  - Blood glucose increased [Unknown]
